FAERS Safety Report 5022396-2 (Version None)
Quarter: 2006Q2

REPORT INFORMATION
  Report Type: 
  Country: None (occurrence: None)
  Receive Date: 20060605
  Receipt Date: 20060526
  Transmission Date: 20061013
  Serious: Yes (Hospitalization)
  Sender: FDA-Public Use
  Company Number: 225608

PATIENT
  Age: 72 Year
  Sex: Male

DRUGS (1)
  1. GRTPA               (ALTEPLASE) [Suspect]
     Indication: CEREBRAL INFARCTION
     Dosage: 24 MIU, SINGLE, INTRAVENOUS
     Route: 042
     Dates: start: 20060502, end: 20060502

REACTIONS (1)
  - DEPRESSED LEVEL OF CONSCIOUSNESS [None]
